FAERS Safety Report 8370692-3 (Version None)
Quarter: 2012Q2

REPORT INFORMATION
  Report Type: 
  Country: None (occurrence: None)
  Receive Date: 20120518
  Receipt Date: 20120517
  Transmission Date: 20120825
  Serious: No
  Sender: FDA-Public Use
  Company Number: US-PFIZER INC-2012116784

PATIENT
  Sex: Male

DRUGS (3)
  1. LIPITOR [Suspect]
     Indication: BLOOD PRESSURE ABNORMAL
     Dosage: 10/40, ONCE A DAY
     Route: 048
     Dates: start: 20031201, end: 20041201
  2. LISINOPRIL [Concomitant]
     Dosage: 10 MG, UNK
  3. ATORVASTATIN CALCIUM [Suspect]
     Indication: BLOOD PRESSURE ABNORMAL
     Dosage: UNK
     Route: 048

REACTIONS (2)
  - EPIGASTRIC DISCOMFORT [None]
  - ABDOMINAL DISCOMFORT [None]
